FAERS Safety Report 6158757-8 (Version None)
Quarter: 2009Q2

REPORT INFORMATION
  Report Type: 
  Country: None (occurrence: None)
  Receive Date: 20090417
  Receipt Date: 20090409
  Transmission Date: 20091009
  Serious: Yes (Other)
  Sender: FDA-Public Use
  Company Number: B0568486A

PATIENT
  Sex: Male
  Weight: 78 kg

DRUGS (3)
  1. WELLBUTRIN [Suspect]
     Indication: DEPRESSION
     Dosage: 150MG PER DAY
     Route: 048
     Dates: start: 20090213, end: 20090213
  2. ALCOHOL [Concomitant]
     Route: 065
  3. OXAZEPAM [Concomitant]
     Indication: AGITATION
     Route: 048

REACTIONS (3)
  - AMNESIA [None]
  - DRUG INTERACTION [None]
  - PYROMANIA [None]
